FAERS Safety Report 6445200-4 (Version None)
Quarter: 2009Q4

REPORT INFORMATION
  Report Type: 
  Country: None (occurrence: None)
  Receive Date: 20091118
  Receipt Date: 20090622
  Transmission Date: 20100525
  Serious: No
  Sender: FDA-Public Use
  Company Number: US-BRISTOL-MYERS SQUIBB COMPANY-14673271

PATIENT
  Age: 57 Year
  Sex: Male
  Weight: 91 kg

DRUGS (7)
  1. GLUCOPHAGE XR [Suspect]
     Indication: DIABETES MELLITUS
     Dosage: 5 DF= 5 TABS. REDUCED TO 1 TABLET AT A TIME
  2. QUINAPRIL [Concomitant]
  3. PRAVASTATIN SODIUM [Concomitant]
  4. HYDROCODONE [Concomitant]
  5. OXYCONTIN [Concomitant]
  6. ASPIRIN [Concomitant]
  7. VITAMIN E [Concomitant]

REACTIONS (1)
  - HYPERHIDROSIS [None]
